FAERS Safety Report 17546557 (Version 1)
Quarter: 2020Q1

REPORT INFORMATION
  Report Type: Spontaneous
  Country: US (occurrence: US)
  Receive Date: 20200316
  Receipt Date: 20200316
  Transmission Date: 20200409
  Serious: Yes (Hospitalization, Other)
  Sender: FDA-Public Use
  Company Number: US-APOTEX-2020AP008717

PATIENT
  Age: 53 Year
  Sex: Male

DRUGS (9)
  1. OLANZAPINE. [Suspect]
     Active Substance: OLANZAPINE
     Indication: SUBSTANCE ABUSE
  2. OLANZAPINE. [Suspect]
     Active Substance: OLANZAPINE
     Indication: BORDERLINE PERSONALITY DISORDER
  3. QUETIAPINE. [Suspect]
     Active Substance: QUETIAPINE
     Indication: BORDERLINE PERSONALITY DISORDER
  4. QUETIAPINE. [Suspect]
     Active Substance: QUETIAPINE
     Indication: SUBSTANCE ABUSE
  5. VALPROIC ACID. [Concomitant]
     Active Substance: VALPROIC ACID
     Indication: AFFECTIVE DISORDER
     Dosage: 1000 MG, IN DIVIDED DOSES
     Route: 065
  6. OLANZAPINE. [Suspect]
     Active Substance: OLANZAPINE
     Indication: DEMENTIA
  7. QUETIAPINE. [Suspect]
     Active Substance: QUETIAPINE
     Indication: MAJOR DEPRESSION
     Dosage: 500 MG, IN DIVIDED DOSES
     Route: 048
  8. QUETIAPINE. [Suspect]
     Active Substance: QUETIAPINE
     Indication: DEMENTIA
  9. OLANZAPINE. [Suspect]
     Active Substance: OLANZAPINE
     Indication: MAJOR DEPRESSION
     Dosage: 25 MG, IN DIVIDED DOSES
     Route: 048

REACTIONS (1)
  - Neuroleptic malignant syndrome [Unknown]
